FAERS Safety Report 22641786 (Version 1)
Quarter: 2023Q2

REPORT INFORMATION
  Report Type: Spontaneous
  Country: DE (occurrence: DE)
  Receive Date: 20230626
  Receipt Date: 20230626
  Transmission Date: 20230722
  Serious: Yes (Congenital Anomaly, Other)
  Sender: FDA-Public Use
  Company Number: None

PATIENT
  Sex: Female

DRUGS (3)
  1. ESCITALOPRAM [Suspect]
     Active Substance: ESCITALOPRAM OXALATE
     Indication: Depression
     Dosage: 10 MG INITIALLY THEN 15 MG DURING PREGNANCY,
     Route: 064
     Dates: start: 2013, end: 2023
  2. ESCITALOPRAM [Suspect]
     Active Substance: ESCITALOPRAM OXALATE
     Indication: Generalised anxiety disorder
  3. ESCITALOPRAM [Suspect]
     Active Substance: ESCITALOPRAM OXALATE
     Indication: Panic attack

REACTIONS (6)
  - Fallot^s tetralogy [Recovering/Resolving]
  - Facial paresis [Recovering/Resolving]
  - Meningocele [Recovering/Resolving]
  - Craniosynostosis [Recovering/Resolving]
  - Epilepsy [Unknown]
  - Foetal exposure during pregnancy [Unknown]

NARRATIVE: CASE EVENT DATE: 20190111
